FAERS Safety Report 7096948-2 (Version None)
Quarter: 2010Q4

REPORT INFORMATION
  Report Type: 
  Country: None (occurrence: None)
  Receive Date: 20101111
  Receipt Date: 20100324
  Transmission Date: 20110411
  Serious: No
  Sender: FDA-Public Use
  Company Number: US-KINGPHARMUSA00001-K201000353

PATIENT
  Sex: Female
  Weight: 65.76 kg

DRUGS (3)
  1. FLECTOR [Suspect]
     Indication: PAIN
     Dosage: UNK PATCH, UNK
     Route: 061
     Dates: start: 20100301, end: 20100301
  2. LORCET-HD [Concomitant]
     Dosage: 10 MG, UNK
  3. FOLIC ACID [Concomitant]
     Dosage: UNK

REACTIONS (2)
  - CHEST DISCOMFORT [None]
  - HEADACHE [None]
